FAERS Safety Report 23083137 (Version 1)
Quarter: 2023Q4

REPORT INFORMATION
  Report Type: Spontaneous
  Country: US (occurrence: None)
  Receive Date: 20231018
  Receipt Date: 20231018
  Transmission Date: 20240110
  Serious: Yes (Hospitalization)
  Sender: FDA-Public Use
  Company Number: None

PATIENT
  Age: 29 Year
  Sex: Male
  Weight: 60 kg

DRUGS (2)
  1. INDOMETHACIN [Suspect]
     Active Substance: INDOMETHACIN
     Dosage: FREQUENCY : TWICE A DAY;?
     Route: 048
     Dates: start: 20230111, end: 20230223
  2. IBUPROFEN [Suspect]
     Active Substance: IBUPROFEN
     Dates: end: 20230223

REACTIONS (3)
  - Acute kidney injury [None]
  - Hypovolaemia [None]
  - Urinary tract infection [None]

NARRATIVE: CASE EVENT DATE: 20230223
